FAERS Safety Report 7473465-9 (Version None)
Quarter: 2011Q2

REPORT INFORMATION
  Report Type: 
  Country: None (occurrence: None)
  Receive Date: 20110503
  Receipt Date: 20110421
  Transmission Date: 20111010
  Serious: Yes (Hospitalization)
  Sender: FDA-Public Use
  Company Number: UTC-006550

PATIENT
  Age: 66 Year
  Sex: Female

DRUGS (2)
  1. REMODULIN [Suspect]
     Indication: PULMONARY ARTERIAL HYPERTENSION
     Dosage: 74.88 UG/KG (0.052 UG/KG,1 IN 1 MIN),INTRAVENOUS
     Route: 042
     Dates: start: 20050301
  2. COUMADIN [Concomitant]

REACTIONS (1)
  - CATHETER SITE INFECTION [None]
